FAERS Safety Report 6899119-5 (Version None)
Quarter: 2010Q3

REPORT INFORMATION
  Report Type: 
  Country: None (occurrence: None)
  Receive Date: 20100802
  Receipt Date: 20080116
  Transmission Date: 20110219
  Serious: No
  Sender: FDA-Public Use
  Company Number: US-PFIZER INC-2008001828

PATIENT
  Age: 45 Year
  Sex: Male
  Weight: 77.1 kg

DRUGS (2)
  1. LYRICA [Suspect]
     Indication: PAIN
     Dates: start: 20071201
  2. VICODIN [Concomitant]

REACTIONS (2)
  - DRUG INEFFECTIVE [None]
  - FATIGUE [None]
